FAERS Safety Report 8856650 (Version 2)
Quarter: 2012Q4

REPORT INFORMATION
  Report Type: Spontaneous
  Country: US (occurrence: None)
  Receive Date: 20121019
  Receipt Date: 20121024
  Transmission Date: 20130627
  Serious: Yes (Hospitalization)
  Sender: FDA-Public Use
  Company Number: AUR-APL-2012-04448

PATIENT
  Age: 70 Year
  Sex: Male

DRUGS (4)
  1. METFORMIN [Suspect]
     Indication: TYPE 2 DIABETES MELLITUS
  2. ETORICOXIB (ETORICOXIB) [Concomitant]
  3. SPIRONOLACTONE (SPIRONOLACTONE) [Concomitant]
  4. FUROSEMIDE (FUROSEMIDE) [Concomitant]

REACTIONS (6)
  - Asthenia [None]
  - Blood potassium increased [None]
  - Lactic acidosis [None]
  - Renal impairment [None]
  - Haemodialysis [None]
  - Alcohol use [None]
